FAERS Safety Report 9176988 (Version 2)
Quarter: 2013Q1

REPORT INFORMATION
  Report Type: Spontaneous
  Country: JP (occurrence: JP)
  Receive Date: 20130321
  Receipt Date: 20130325
  Transmission Date: 20140127
  Serious: Yes (Hospitalization)
  Sender: FDA-Public Use
  Company Number: JP-EISAI INC-E2090-02563-SPO-JP

PATIENT
  Age: 3 Year
  Sex: Male

DRUGS (3)
  1. EXCEGRAN [Suspect]
     Indication: EPILEPSY
     Dosage: 32 MG DAILY
     Route: 048
  2. EXCEGRAN [Suspect]
     Dosage: 64 MG DAILY
     Route: 048
  3. EXCEGRAN [Suspect]
     Dosage: 120 MG DAILY
     Route: 048

REACTIONS (1)
  - Protein-losing gastroenteropathy [Not Recovered/Not Resolved]
